FAERS Safety Report 25791522 (Version 1)
Quarter: 2025Q3

REPORT INFORMATION
  Report Type: Spontaneous
  Country: US (occurrence: None)
  Receive Date: 20250911
  Receipt Date: 20250911
  Transmission Date: 20251020
  Serious: No
  Sender: FDA-CTU
  Company Number: None

PATIENT
  Age: 67 Year
  Sex: Female
  Weight: 63.9 kg

DRUGS (5)
  1. CAPECITABINE [Suspect]
     Active Substance: CAPECITABINE
     Indication: Breast cancer female
     Route: 048
  2. IRON 240 (27FE) TAB [Concomitant]
     Dates: start: 20250908
  3. VITMAIN D3 50 MCG CAP [Concomitant]
     Dates: start: 20250908
  4. DEXAMETHASONE 1MG TAB [Concomitant]
     Dates: start: 20250702
  5. FEMARA 2.5MG TAB [Concomitant]
     Dates: start: 20230920

REACTIONS (1)
  - Blister [None]
